FAERS Safety Report 23480166 (Version 1)
Quarter: 2024Q1

REPORT INFORMATION
  Report Type: Spontaneous
  Country: IT (occurrence: IT)
  Receive Date: 20240205
  Receipt Date: 20240205
  Transmission Date: 20240409
  Serious: Yes (Other)
  Sender: FDA-Public Use
  Company Number: IT-CELLTRION INC.-2024IT002013

PATIENT

DRUGS (1)
  1. ADALIMUMAB [Suspect]
     Active Substance: ADALIMUMAB\ISOPROPYL ALCOHOL
     Indication: Colitis ulcerative
     Dosage: 40MG, EVERY 14 DAYS
     Route: 058
     Dates: start: 20160110, end: 20231201

REACTIONS (5)
  - Haematochezia [Recovering/Resolving]
  - Weight decreased [Recovering/Resolving]
  - Abdominal pain [Recovering/Resolving]
  - Arthralgia [Recovering/Resolving]
  - Therapeutic response changed [Not Recovered/Not Resolved]

NARRATIVE: CASE EVENT DATE: 20231012
